FAERS Safety Report 4444721-3 (Version None)
Quarter: 2004Q3

REPORT INFORMATION
  Report Type: 
  Country: None (occurrence: None)
  Receive Date: 20040902
  Receipt Date: 20040818
  Transmission Date: 20050211
  Serious: Yes (Hospitalization)
  Sender: FDA-Public Use
  Company Number: 04P-163-0271116-00

PATIENT
  Age: 78 Year
  Sex: Female

DRUGS (10)
  1. HUMIRA [Suspect]
     Indication: RHEUMATOID ARTHRITIS
     Dosage: 40 MG, 1 IN 2 WK, SUBCUTANEOUS
     Route: 058
     Dates: start: 20031001, end: 20040301
  2. METHOTREXATE [Concomitant]
  3. PREDNISONE [Concomitant]
  4. ESOMEPRAZOLE [Concomitant]
  5. COMBIVENT [Concomitant]
  6. MOXIFLOXACIN HYDROCHLORIDE [Concomitant]
  7. PARACETAMOL [Concomitant]
  8. OXYCOCET [Concomitant]
  9. FUROSEMIDE [Concomitant]
  10. LEFLUNOMIDE [Concomitant]

REACTIONS (3)
  - LOSS OF CONSCIOUSNESS [None]
  - NON-HODGKIN'S LYMPHOMA [None]
  - URINARY TRACT INFECTION [None]
